FAERS Safety Report 24430984 (Version 2)
Quarter: 2025Q1

REPORT INFORMATION
  Report Type: Spontaneous
  Country: CN (occurrence: CN)
  Receive Date: 20241014
  Receipt Date: 20250205
  Transmission Date: 20250409
  Serious: Yes (Other)
  Sender: ALEXION PHARMACEUTICALS
  Company Number: CN-ASTRAZENECA-202409CHN011966CN

PATIENT
  Age: 42 Year
  Weight: 84 kg

DRUGS (1)
  1. PULMICORT RESPULES [Suspect]
     Active Substance: BUDESONIDE
     Indication: Pneumonia
     Dosage: 4 MILLILITER, BID

REACTIONS (2)
  - Foreign body in throat [Recovered/Resolved]
  - Pallor [Recovered/Resolved]
